FAERS Safety Report 21258766 (Version 1)
Quarter: 2022Q3

REPORT INFORMATION
  Report Type: Spontaneous
  Country: US (occurrence: US)
  Receive Date: 20220826
  Receipt Date: 20220826
  Transmission Date: 20221026
  Serious: No
  Sender: FDA-Public Use
  Company Number: US-TORRENT-00011977

PATIENT
  Age: 12 Year
  Sex: Female

DRUGS (2)
  1. VENLAFAXINE HYDROCHLORIDE [Suspect]
     Active Substance: VENLAFAXINE HYDROCHLORIDE
     Indication: Anxiety
     Dosage: 75 MG ONCE A DAY
     Route: 065
     Dates: start: 202204
  2. JORNAY PM EXTENDED-RELEASE [Concomitant]
     Active Substance: METHYLPHENIDATE HYDROCHLORIDE
     Indication: Attention deficit hyperactivity disorder
     Dosage: 60 MG ONCE DAILY
     Route: 065

REACTIONS (2)
  - Nausea [Not Recovered/Not Resolved]
  - Product substitution issue [Unknown]

NARRATIVE: CASE EVENT DATE: 20220101
